FAERS Safety Report 7992269-1 (Version None)
Quarter: 2011Q4

REPORT INFORMATION
  Report Type: 
  Country: None (occurrence: None)
  Receive Date: 20111219
  Receipt Date: 20110125
  Transmission Date: 20120403
  Serious: No
  Sender: FDA-Public Use
  Company Number: US-ASTRAZENECA-2011SE04690

PATIENT
  Age: 60 Year
  Sex: Male

DRUGS (1)
  1. CRESTOR [Suspect]
     Route: 048
     Dates: start: 20100901

REACTIONS (5)
  - PAIN [None]
  - SUPRAPUBIC PAIN [None]
  - ABDOMINAL PAIN LOWER [None]
  - GENITAL BURNING SENSATION [None]
  - DYSURIA [None]
